FAERS Safety Report 12167337 (Version 2)
Quarter: 2016Q2

REPORT INFORMATION
  Report Type: Spontaneous
  Country: US (occurrence: US)
  Receive Date: 20160310
  Receipt Date: 20160413
  Transmission Date: 20160815
  Serious: Yes (Hospitalization, Other)
  Sender: FDA-Public Use
  Company Number: US-GLAXOSMITHKLINE-A1015477A

PATIENT
  Age: 70 Year
  Sex: Female

DRUGS (7)
  1. FLUTICASONE PROPIONATE. [Concomitant]
     Active Substance: FLUTICASONE PROPIONATE
  2. ADVAIR HFA [Suspect]
     Active Substance: FLUTICASONE PROPIONATE\SALMETEROL XINAFOATE
     Indication: DYSPNOEA
     Dosage: 250/50 UG
     Dates: start: 2011
  3. TYLENOL [Concomitant]
     Active Substance: ACETAMINOPHEN
  4. ADVAIR HFA [Suspect]
     Active Substance: FLUTICASONE PROPIONATE\SALMETEROL XINAFOATE
     Indication: RESPIRATORY DISTRESS
     Dosage: 250/50
     Route: 055
     Dates: start: 201003
  5. ADVAIR HFA [Suspect]
     Active Substance: FLUTICASONE PROPIONATE\SALMETEROL XINAFOATE
     Indication: CHRONIC OBSTRUCTIVE PULMONARY DISEASE
     Dosage: 250 MCG
     Route: 055
  6. SIMVASTATIN. [Concomitant]
     Active Substance: SIMVASTATIN
  7. METOPROLOL. [Concomitant]
     Active Substance: METOPROLOL

REACTIONS (6)
  - Neck surgery [Unknown]
  - Spinal operation [Unknown]
  - Hypersomnia [Unknown]
  - Spinal fusion surgery [Unknown]
  - Amnesia [Unknown]
  - Oral discomfort [Not Recovered/Not Resolved]

NARRATIVE: CASE EVENT DATE: 20130211
